FAERS Safety Report 14290592 (Version 1)
Quarter: 2017Q4

REPORT INFORMATION
  Report Type: Report from Study
  Country: GB (occurrence: GB)
  Receive Date: 20171215
  Receipt Date: 20171215
  Transmission Date: 20180321
  Serious: Yes (Hospitalization)
  Sender: FDA-Public Use
  Company Number: GB-SHIRE-GB201733393

PATIENT

DRUGS (1)
  1. IDURSULFASE [Suspect]
     Active Substance: IDURSULFASE
     Indication: MUCOPOLYSACCHARIDOSIS II
     Dosage: 0.65 MG/KG, 1X/WEEK
     Route: 065
     Dates: start: 20110714

REACTIONS (1)
  - Tracheoscopy [Unknown]

NARRATIVE: CASE EVENT DATE: 20120702
